FAERS Safety Report 8100124 (Version 9)
Quarter: 2014Q4

REPORT INFORMATION
  Report Type: Report from Study
  Country: US (occurrence: US)
  Receive Date: 20110822
  Receipt Date: 20141107
  Transmission Date: 20150529
  Serious: Yes (Life-Threatening, Hospitalization, Disabling, Other)
  Sender: FDA-Public Use
  Company Number: US-MPIJNJ-2011-03560

PATIENT
  Age: 61 Year
  Sex: Male
  Weight: 92.51 kg

DRUGS (7)
  1. PAMIDRONATE [Suspect]
     Active Substance: PAMIDRONATE DISODIUM
     Indication: METASTASIS
     Dosage: 90 MG
     Route: 042
     Dates: start: 20110307, end: 20110307
  2. PHENERGAN [Concomitant]
     Active Substance: PROMETHAZINE HYDROCHLORIDE
     Indication: NAUSEA
     Dosage: 12.5 MG, CYCLIC
     Dates: start: 20110307, end: 20110425
  3. VELCADE [Suspect]
     Active Substance: BORTEZOMIB
     Indication: PLASMA CELL MYELOMA
     Dosage: 2.6 MG, D1,4,8,11 Q3WEEKS
     Route: 042
     Dates: start: 20110307, end: 20110714
  4. ADRIAMYCIN [Suspect]
     Active Substance: DOXORUBICIN HYDROCHLORIDE
     Indication: PLASMA CELL MYELOMA
     Dosage: 20 MG D1 AND D8 Q3 WEEKS
     Route: 042
     Dates: start: 20110307, end: 20110714
  5. DEXAMETHASONE. [Suspect]
     Active Substance: DEXAMETHASONE
     Indication: PLASMA CELL MYELOMA
     Dosage: 40 MG, UNK
     Route: 065
     Dates: start: 20110307, end: 20110523
  6. KYTRIL                             /01178101/ [Concomitant]
     Indication: NAUSEA
     Dosage: 1 MG, CYCLIC
     Dates: start: 20110307, end: 20110425
  7. ALOXI [Concomitant]
     Active Substance: PALONOSETRON HYDROCHLORIDE
     Indication: NAUSEA
     Dosage: 0.25 MG, CYCLIC
     Dates: start: 20110307, end: 20110425

REACTIONS (8)
  - Pain in extremity [Recovered/Resolved]
  - Diabetes mellitus [Recovered/Resolved]
  - Joint effusion [Recovered/Resolved]
  - Deep vein thrombosis [Recovered/Resolved]
  - Anaemia [Recovered/Resolved]
  - Back pain [Recovered/Resolved]
  - Acute kidney injury [Recovered/Resolved]
  - Hyperglycaemia [Recovered/Resolved]

NARRATIVE: CASE EVENT DATE: 20110509
